FAERS Safety Report 19928707 (Version 1)
Quarter: 2021Q4

REPORT INFORMATION
  Report Type: Spontaneous
  Country: US (occurrence: US)
  Receive Date: 20211005
  Receipt Date: 20211005
  Transmission Date: 20220303
  Serious: Yes (Hospitalization)
  Sender: FDA-Public Use
  Company Number: None

PATIENT
  Sex: Male

DRUGS (2)
  1. RETEVMO [Suspect]
     Active Substance: SELPERCATINIB
     Indication: Lung neoplasm malignant
     Route: 048
     Dates: start: 20210928
  2. RETEVMO [Suspect]
     Active Substance: SELPERCATINIB
     Indication: Bronchial carcinoma

REACTIONS (1)
  - Dyspnoea [None]
